FAERS Safety Report 8139046-9 (Version None)
Quarter: 2012Q1

REPORT INFORMATION
  Report Type: 
  Country: None (occurrence: None)
  Receive Date: 20120215
  Receipt Date: 20120209
  Transmission Date: 20120608
  Serious: Yes (Hospitalization)
  Sender: FDA-Public Use
  Company Number: JP-B.I. PHARMACEUTICALS,INC./RIDGEFIELD-2012-BP-00992NB

PATIENT
  Sex: Female
  Weight: 60.1 kg

DRUGS (13)
  1. LANSOPRAZOLE [Concomitant]
     Indication: PROPHYLAXIS
     Dosage: 30 MG
     Route: 048
     Dates: end: 20111205
  2. LASIX [Concomitant]
     Dosage: 80 MG
     Route: 048
     Dates: end: 20111128
  3. PLETAL [Concomitant]
     Dosage: 100 MG
     Route: 048
  4. EPALRESTAT [Concomitant]
     Dosage: 150 MG
     Route: 048
  5. ASPIRIN [Concomitant]
     Dosage: 100 MG
     Route: 048
  6. TELMISARTAN/AMLODIPINE [Suspect]
     Indication: HYPERTENSION
     Dosage: 1DF
     Route: 048
     Dates: start: 20110913, end: 20111205
  7. LIPITOR [Concomitant]
     Dosage: 30 MG
     Route: 048
     Dates: end: 20111205
  8. ALLOPURINOL [Concomitant]
     Dosage: 100 MG
     Route: 048
     Dates: end: 20111202
  9. MAIRAN [Concomitant]
     Dosage: 6 G
     Route: 048
     Dates: end: 20111128
  10. SENNAL [Concomitant]
     Dosage: 24 MG
     Route: 048
  11. HUMALOG [Concomitant]
     Dosage: 9 U
     Route: 058
  12. FERROUS CITRATE [Concomitant]
     Dosage: 50 MG
     Route: 048
     Dates: end: 20111128
  13. PIROLACTON [Concomitant]
     Dosage: 25 MG
     Route: 048

REACTIONS (1)
  - CARDIAC FAILURE [None]
